FAERS Safety Report 7517632-4 (Version None)
Quarter: 2011Q2

REPORT INFORMATION
  Report Type: 
  Country: None (occurrence: None)
  Receive Date: 20110601
  Receipt Date: 20110530
  Transmission Date: 20111010
  Serious: Yes (Life-Threatening, Hospitalization)
  Sender: FDA-Public Use
  Company Number: FR-SANOFI-AVENTIS-2011SA033707

PATIENT
  Age: 46 Year
  Sex: Male

DRUGS (5)
  1. ATAZANAVIR SULFATE [Concomitant]
     Indication: HIV INFECTION
     Route: 048
  2. KETEK [Suspect]
     Route: 048
     Dates: start: 20110117, end: 20110201
  3. EMTRICITABINE/TENOFOVIR DISOPROXIL FUMARATE [Concomitant]
     Indication: HIV INFECTION
     Route: 048
  4. RISPERDAL [Suspect]
     Route: 048
     Dates: end: 20110201
  5. NORVIR [Concomitant]
     Indication: HIV INFECTION
     Route: 048

REACTIONS (5)
  - JAUNDICE [None]
  - DEPRESSED LEVEL OF CONSCIOUSNESS [None]
  - HAPTOGLOBIN DECREASED [None]
  - PANCYTOPENIA [None]
  - ACUTE HEPATIC FAILURE [None]
